FAERS Safety Report 24962458 (Version 1)
Quarter: 2025Q1

REPORT INFORMATION
  Report Type: Report from Study
  Country: US (occurrence: US)
  Receive Date: 20250212
  Receipt Date: 20250212
  Transmission Date: 20250409
  Serious: Yes (Hospitalization)
  Sender: JOHNSON AND JOHNSON
  Company Number: US-JNJFOC-20250124344

PATIENT
  Sex: Female

DRUGS (1)
  1. UPTRAVI [Suspect]
     Active Substance: SELEXIPAG
     Indication: Pulmonary arterial hypertension
     Route: 048
     Dates: start: 2024

REACTIONS (8)
  - Abdominal pain upper [Unknown]
  - Abdominal discomfort [Unknown]
  - Illness [Unknown]
  - Weight decreased [Unknown]
  - Gastritis [Unknown]
  - Influenza [Unknown]
  - Decreased appetite [Unknown]
  - Diarrhoea [Unknown]
